FAERS Safety Report 7373602-0 (Version None)
Quarter: 2011Q1

REPORT INFORMATION
  Report Type: 
  Country: None (occurrence: None)
  Receive Date: 20110325
  Receipt Date: 20100805
  Transmission Date: 20110831
  Serious: Yes (Hospitalization, Other)
  Sender: FDA-Public Use
  Company Number: US-BAYER-201020492NA

PATIENT
  Sex: Female
  Weight: 59.864 kg

DRUGS (15)
  1. ORTHO EVRA [Concomitant]
     Route: 062
     Dates: start: 20050101
  2. DILANTIN [Concomitant]
     Dates: start: 20070506
  3. PROAIR HFA [Concomitant]
     Indication: ASTHMA
     Dates: start: 19940101
  4. OCELLA [Suspect]
     Indication: CONTRACEPTION
     Dates: start: 20060901, end: 20090901
  5. PROVENTIL [Concomitant]
  6. PROPYLTHIOURACIL [Concomitant]
     Dates: start: 20050101, end: 20070101
  7. ZONIG NOS [Concomitant]
     Dates: start: 20080701
  8. MOTRIN [Concomitant]
  9. TEGRETOL [Concomitant]
  10. ALBUTEROL [Concomitant]
  11. YASMIN [Suspect]
     Route: 048
     Dates: start: 20060901, end: 20090901
  12. ALEVE [Concomitant]
     Dates: start: 20000101
  13. ADVAIR DISKUS 100/50 [Concomitant]
     Indication: ASTHMA
     Dates: start: 19940101
  14. PRENATAL VITAMINS [Concomitant]
     Dosage: OVER THE COUNTER. DAILY
  15. ACETAMINOPHEN [Concomitant]

REACTIONS (4)
  - ABDOMINAL PAIN [None]
  - CHEST PAIN [None]
  - CHOLELITHIASIS [None]
  - CHOLECYSTITIS CHRONIC [None]
